FAERS Safety Report 6471426-X (Version None)
Quarter: 2009Q4

REPORT INFORMATION
  Report Type: 
  Country: None (occurrence: None)
  Receive Date: 20091203
  Receipt Date: 20091126
  Transmission Date: 20100525
  Serious: Yes (Disabling, Other)
  Sender: FDA-Public Use
  Company Number: BR-PFIZER INC-2009285536

PATIENT
  Age: 66 Year
  Sex: Female
  Weight: 54 kg

DRUGS (9)
  1. CHAMPIX [Suspect]
     Indication: TOBACCO USER
     Dosage: UNK
     Route: 048
     Dates: start: 20090901
  2. CHAMPIX [Suspect]
     Indication: SMOKING CESSATION THERAPY
  3. SELOZOK [Concomitant]
     Dosage: UNK
  4. LASIX [Concomitant]
     Dosage: UNK
  5. METFORMIN [Concomitant]
     Dosage: UNK
  6. AAS [Concomitant]
     Dosage: UNK
  7. CAPTOPRIL [Concomitant]
     Dosage: UNK
  8. OMEPRAZOLE [Concomitant]
     Dosage: UNK
  9. SIMECO [Concomitant]
     Dosage: UNK

REACTIONS (10)
  - ABDOMINAL PAIN UPPER [None]
  - APPARENT DEATH [None]
  - FATIGUE [None]
  - HYPOPHAGIA [None]
  - NAUSEA [None]
  - PILOERECTION [None]
  - SOMNOLENCE [None]
  - TREMOR [None]
  - VOMITING [None]
  - WEIGHT DECREASED [None]
